FAERS Safety Report 16108620 (Version 1)
Quarter: 2019Q1

REPORT INFORMATION
  Report Type: Report from Study
  Country: PL (occurrence: PL)
  Receive Date: 20190323
  Receipt Date: 20190323
  Transmission Date: 20190418
  Serious: Yes (Other)
  Sender: FDA-Public Use
  Company Number: PL-ACCORD-114409

PATIENT

DRUGS (2)
  1. CAPECITABINE. [Suspect]
     Active Substance: CAPECITABINE
     Indication: NEUROENDOCRINE CARCINOMA
     Dosage: ON DAYS 1-14 (MAX. 1000 MG ORALLY TWICE DAILY)
     Route: 048
  2. TEMOZOLOMIDE. [Suspect]
     Active Substance: TEMOZOLOMIDE
     Indication: NEUROENDOCRINE CARCINOMA
     Dosage: 150-200 MG/M2 ONCE DAILY OR DIVIDED INTO TWO DOSES ON DAYS 10-14 OF 28-DAY CYCLE

REACTIONS (3)
  - Off label use [Unknown]
  - Diarrhoea [Unknown]
  - Palmar-plantar erythrodysaesthesia syndrome [Unknown]
